FAERS Safety Report 14549077 (Version 1)
Quarter: 2018Q1

REPORT INFORMATION
  Report Type: Spontaneous
  Country: RU (occurrence: RU)
  Receive Date: 20180219
  Receipt Date: 20180219
  Transmission Date: 20180509
  Serious: No
  Sender: FDA-Public Use
  Company Number: RU-B. BRAUN MEDICAL INC.-2042256

PATIENT
  Age: 27 Year
  Sex: Female

DRUGS (2)
  1. PROCAINE (NOVOCAINE) [Concomitant]
  2. DEXTROSE INJECTIONS USP 0264-7510-00 0264-7510-20 [Suspect]
     Active Substance: DEXTROSE

REACTIONS (1)
  - Pyrexia [Recovered/Resolved]
